FAERS Safety Report 6856589-6 (Version None)
Quarter: 2010Q3

REPORT INFORMATION
  Report Type: 
  Country: None (occurrence: None)
  Receive Date: 20100719
  Receipt Date: 20100709
  Transmission Date: 20110219
  Serious: Yes (Other)
  Sender: FDA-Public Use
  Company Number: JP-PFIZER INC-2010085824

PATIENT
  Age: 72 Year
  Sex: Female

DRUGS (10)
  1. LIPITOR [Suspect]
     Dosage: 10 MG
     Route: 048
     Dates: start: 20100406, end: 20100518
  2. FOSAMAC [Suspect]
     Dosage: 35 MG, WEEKLY
     Route: 048
     Dates: start: 20100206, end: 20100518
  3. SITAGLIPTIN [Concomitant]
     Dosage: UNK
     Route: 048
     Dates: start: 20100209
  4. NEUQUINON [Concomitant]
     Dosage: UNK
     Route: 048
     Dates: start: 20091201
  5. ROCORNAL [Concomitant]
     Dosage: UNK
     Route: 048
     Dates: start: 20091201
  6. DIGOSIN [Concomitant]
     Dosage: UNK
     Route: 048
     Dates: start: 20091201
  7. LOPRESSOR [Concomitant]
     Dosage: UNK
     Route: 048
     Dates: start: 20091201
  8. MAINTATE [Concomitant]
     Dosage: UNK
     Route: 048
     Dates: start: 20091201
  9. EPADEL [Concomitant]
     Dosage: UNK
     Route: 048
     Dates: start: 20091201
  10. ADALAT CC [Concomitant]
     Dosage: UNK
     Dates: start: 20091201

REACTIONS (1)
  - HEPATIC FUNCTION ABNORMAL [None]
